FAERS Safety Report 8062683-7 (Version None)
Quarter: 2012Q1

REPORT INFORMATION
  Report Type: 
  Country: None (occurrence: None)
  Receive Date: 20120106
  Receipt Date: 20111222
  Transmission Date: 20120608
  Serious: Yes (Other)
  Sender: FDA-Public Use
  Company Number: 2011030637

PATIENT
  Sex: Female

DRUGS (5)
  1. BERINERT [Suspect]
     Indication: HEREDITARY ANGIOEDEMA
  2. CYMBALTA [Concomitant]
  3. LEXAPRO [Concomitant]
  4. SINGULAIR [Concomitant]
  5. ZYRTEC [Concomitant]

REACTIONS (3)
  - SWELLING [None]
  - FLUID RETENTION [None]
  - PARAESTHESIA [None]
